FAERS Safety Report 13081808 (Version 3)
Quarter: 2017Q4

REPORT INFORMATION
  Report Type: Spontaneous
  Country: CH (occurrence: CH)
  Receive Date: 20170103
  Receipt Date: 20171220
  Transmission Date: 20180320
  Serious: Yes (Death, Hospitalization)
  Sender: FDA-Public Use
  Company Number: CH-BAYER-2016-191821

PATIENT
  Sex: Female

DRUGS (4)
  1. STIVARGA [Suspect]
     Active Substance: REGORAFENIB
     Indication: HEPATOCELLULAR CARCINOMA
     Dosage: 40 MG, BID
     Dates: start: 20160930, end: 20161125
  2. STIVARGA [Suspect]
     Active Substance: REGORAFENIB
     Indication: HEPATOCELLULAR CARCINOMA
     Dosage: 80 MG, PER DAY
     Route: 048
     Dates: start: 20170116, end: 20170414
  3. ALDACTONE A [Concomitant]
     Active Substance: SPIRONOLACTONE
     Indication: ASCITES
     Dosage: 25-50 MG
     Route: 048
  4. DILATREND [Concomitant]
     Active Substance: CARVEDILOL
     Dosage: 6.25
     Route: 048

REACTIONS (6)
  - Nausea [None]
  - Hepatocellular carcinoma [Fatal]
  - Diarrhoea [None]
  - Toxicity to various agents [None]
  - Underdose [None]
  - Off label use [None]

NARRATIVE: CASE EVENT DATE: 2016
